FAERS Safety Report 8756421 (Version 1)
Quarter: 2012Q4

REPORT INFORMATION
  Report Type: 
  Country: US (occurrence: US)
  Receive Date: 20120828
  Receipt Date: 20120828
  Transmission Date: 20130627
  Serious: No
  Sender: FDA-Public Use
  Company Number: US-009507513-1208USA008322

PATIENT

DRUGS (4)
  1. PEGINTRON [Suspect]
     Dosage: 108 Microgram, qw
     Route: 058
  2. REBETOL [Suspect]
     Route: 048
  3. IBUPROFEN [Concomitant]
     Route: 048
  4. TYLENOL [Concomitant]
     Route: 048

REACTIONS (3)
  - Injection site rash [Unknown]
  - Influenza like illness [Unknown]
  - Decreased appetite [Unknown]
